FAERS Safety Report 7897506-X (Version None)
Quarter: 2011Q4

REPORT INFORMATION
  Report Type: 
  Country: None (occurrence: None)
  Receive Date: 20111107
  Receipt Date: 20111101
  Transmission Date: 20120403
  Serious: Yes (Hospitalization)
  Sender: FDA-Public Use
  Company Number: US-JNJFOC-20111100598

PATIENT
  Age: 58 Year
  Sex: Female

DRUGS (1)
  1. NUCYNTA ER [Suspect]
     Indication: PAIN
     Route: 048
     Dates: start: 20110101, end: 20110101

REACTIONS (4)
  - VISUAL IMPAIRMENT [None]
  - DELIRIUM [None]
  - PSYCHOTIC DISORDER [None]
  - PSYCHOMOTOR HYPERACTIVITY [None]
